FAERS Safety Report 5473020-6 (Version None)
Quarter: 2007Q4

REPORT INFORMATION
  Report Type: 
  Country: None (occurrence: None)
  Receive Date: 20071001
  Receipt Date: 20070302
  Transmission Date: 20080405
  Serious: No
  Sender: FDA-Public Use
  Company Number: US-ASTRAZENECA-2007UW04062

PATIENT
  Age: 68 Year
  Sex: Female
  Weight: 106.6 kg

DRUGS (1)
  1. ARIMIDEX [Suspect]
     Indication: BREAST CANCER
     Route: 048

REACTIONS (4)
  - ARTHRALGIA [None]
  - DIZZINESS [None]
  - HYPERHIDROSIS [None]
  - THROAT TIGHTNESS [None]
